FAERS Safety Report 24309966 (Version 1)
Quarter: 2024Q3

REPORT INFORMATION
  Report Type: Spontaneous
  Country: US (occurrence: US)
  Receive Date: 20240912
  Receipt Date: 20240912
  Transmission Date: 20241017
  Serious: Yes (Hospitalization)
  Sender: HETERO
  Company Number: US-AMAROX PHARMA-HET2024US03018

PATIENT
  Age: 74 Year
  Sex: Male

DRUGS (7)
  1. POSACONAZOLE [Suspect]
     Active Substance: POSACONAZOLE
     Indication: Antibiotic prophylaxis
     Dosage: UNK
     Route: 065
  2. MYCOPHENOLATE MOFETIL [Concomitant]
     Active Substance: MYCOPHENOLATE MOFETIL
     Indication: Immunosuppression
     Dosage: 360 MILLIGRAM, BID
     Route: 065
  3. AZITHROMYCIN [Concomitant]
     Active Substance: AZITHROMYCIN
     Indication: Antibiotic prophylaxis
     Dosage: UNK
     Route: 065
  4. VALGANCICLOVIR [Concomitant]
     Active Substance: VALGANCICLOVIR
     Indication: Antibiotic prophylaxis
     Dosage: UNK
     Route: 065
  5. ATOVAQUONE [Concomitant]
     Active Substance: ATOVAQUONE
     Indication: Antibiotic prophylaxis
     Dosage: UNK
     Route: 065
  6. PREDNISONE [Concomitant]
     Active Substance: PREDNISONE
     Indication: Immunosuppression
     Dosage: 5 MILLIGRAM
     Route: 065
  7. TACROLIMUS [Concomitant]
     Active Substance: TACROLIMUS
     Indication: Immunosuppression
     Dosage: 7.5 MILLIGRAM
     Route: 065

REACTIONS (1)
  - Pancytopenia [Recovering/Resolving]
